FAERS Safety Report 21660948 (Version 2)
Quarter: 2022Q4

REPORT INFORMATION
  Report Type: Report from Study
  Country: US (occurrence: US)
  Receive Date: 20221130
  Receipt Date: 20221205
  Transmission Date: 20230112
  Serious: Yes (Hospitalization, Other)
  Sender: FDA-Public Use
  Company Number: US-BRISTOL-MYERS SQUIBB COMPANY-2022-144969

PATIENT
  Age: 95 Year
  Sex: Male
  Weight: 66.1 kg

DRUGS (4)
  1. IPILIMUMAB [Suspect]
     Active Substance: IPILIMUMAB
     Indication: Penile cancer
     Dosage: ON DAY 1 OF 21DAYS CYCLE TILL CYCLE 4
     Route: 042
     Dates: start: 20200310, end: 20200602
  2. NIVOLUMAB [Suspect]
     Active Substance: NIVOLUMAB
     Indication: Penile cancer
     Dosage: ON DAY 1 OF 21DAYS CYCLE TILL CYCLE 4
     Route: 042
     Dates: start: 20200310, end: 20200602
  3. NIVOLUMAB [Suspect]
     Active Substance: NIVOLUMAB
     Route: 042
     Dates: end: 20200915
  4. CABOZANTINIB [Suspect]
     Active Substance: CABOZANTINIB
     Indication: Penile cancer
     Route: 048
     Dates: start: 20200310, end: 20200331

REACTIONS (1)
  - Femur fracture [Not Recovered/Not Resolved]

NARRATIVE: CASE EVENT DATE: 20200929
